FAERS Safety Report 5168741-9 (Version None)
Quarter: 2006Q4

REPORT INFORMATION
  Report Type: 
  Country: None (occurrence: None)
  Receive Date: 20061211
  Receipt Date: 20061202
  Transmission Date: 20070319
  Serious: Yes (Other)
  Sender: FDA-Public Use
  Company Number: US-JNJFOC-20061201546

PATIENT
  Sex: Male
  Weight: 107.05 kg

DRUGS (3)
  1. REMICADE [Suspect]
     Dosage: DOSE 6 VIALS
     Route: 042
  2. REMICADE [Suspect]
     Indication: ANKYLOSING SPONDYLITIS
     Dosage: DOSE 6 VIALS
     Route: 042
  3. OXYCONTIN [Concomitant]
     Indication: PAIN

REACTIONS (2)
  - HEPATIC NEOPLASM MALIGNANT [None]
  - PNEUMONIA [None]
